FAERS Safety Report 11584557 (Version 1)
Quarter: 2015Q4

REPORT INFORMATION
  Report Type: Report from Study
  Country: US (occurrence: US)
  Receive Date: 20151001
  Receipt Date: 20151001
  Transmission Date: 20160304
  Serious: No
  Sender: FDA-Public Use
  Company Number: PHEH2015US003939

PATIENT
  Age: 2 Year
  Sex: Female

DRUGS (4)
  1. SULFAMETOXAZOL/TRIMETOPRIM [Concomitant]
     Indication: PRODUCT USED FOR UNKNOWN INDICATION
     Dosage: TWICE DAILY ON WEEKENDS
     Route: 065
  2. PENTAMIDINE [Concomitant]
     Active Substance: PENTAMIDINE
     Indication: PRODUCT USED FOR UNKNOWN INDICATION
     Dosage: UNK UNK, QMO
     Route: 065
     Dates: start: 20150611
  3. AFINITOR [Suspect]
     Active Substance: EVEROLIMUS
     Indication: BRAIN NEOPLASM BENIGN
     Dosage: UNK OT, QD (DOSE UNSPECIFIED)
     Route: 048
     Dates: start: 20140626, end: 20150206
  4. AFINITOR [Suspect]
     Active Substance: EVEROLIMUS
     Dosage: UNK OT, QD (DOSE UNSPECIFIED)
     Route: 048
     Dates: start: 20150330

REACTIONS (6)
  - Abdominal discomfort [Unknown]
  - Chapped lips [Unknown]
  - Arthropod bite [Unknown]
  - Lip dry [Unknown]
  - Neutrophil count decreased [Unknown]
  - Lip pain [Unknown]

NARRATIVE: CASE EVENT DATE: 20150603
